FAERS Safety Report 18364550 (Version 2)
Quarter: 2021Q1

REPORT INFORMATION
  Report Type: Report from Study
  Country: IN (occurrence: IN)
  Receive Date: 20201009
  Receipt Date: 20210317
  Transmission Date: 20210419
  Serious: Yes (Other)
  Sender: FDA-Public Use
  Company Number: PHHY2019IN007464

PATIENT
  Age: 65 Year
  Sex: Female
  Weight: 64 kg

DRUGS (17)
  1. SCAPHO [Suspect]
     Active Substance: SECUKINUMAB
     Dosage: 300 MG, QW
     Route: 058
     Dates: start: 20181228
  2. SCAPHO [Suspect]
     Active Substance: SECUKINUMAB
     Dosage: 300 MG, QW
     Route: 058
     Dates: start: 20190104
  3. SCAPHO [Suspect]
     Active Substance: SECUKINUMAB
     Dosage: 300 MG (ONCE IN 60 DAYS)
     Route: 058
     Dates: start: 20190916
  4. SCAPHO [Suspect]
     Active Substance: SECUKINUMAB
     Dosage: 300 MG, QW
     Route: 058
     Dates: start: 20190420
  5. SCAPHO [Suspect]
     Active Substance: SECUKINUMAB
     Dosage: 300 MG, UNK (ONCE IN 45 DAYS OR 60 DAYS)
     Route: 065
     Dates: start: 20190710
  6. SCAPHO [Suspect]
     Active Substance: SECUKINUMAB
     Dosage: 300 MG, Q2MO
     Route: 058
     Dates: start: 20200925
  7. AMLODIPIN [Concomitant]
     Active Substance: AMLODIPINE BESYLATE
     Indication: BLOOD PRESSURE ABNORMAL
     Dosage: 5 MG, UNK
     Route: 065
  8. SCAPHO [Suspect]
     Active Substance: SECUKINUMAB
     Dosage: 300 MG, Q2MO
     Route: 065
     Dates: start: 20191130
  9. SCAPHO [Suspect]
     Active Substance: SECUKINUMAB
     Dosage: 300 MG, Q2MO
     Route: 058
     Dates: start: 20200708
  10. SCAPHO [Suspect]
     Active Substance: SECUKINUMAB
     Dosage: 300 MG, QMO
     Route: 058
     Dates: start: 20210308
  11. INSULIN [Concomitant]
     Active Substance: INSULIN NOS
     Indication: DIABETES MELLITUS
     Dosage: UNK
     Route: 065
  12. SCAPHO [Suspect]
     Active Substance: SECUKINUMAB
     Indication: PSORIASIS
     Dosage: 300 MG, QW
     Route: 058
     Dates: start: 20181213
  13. SCAPHO [Suspect]
     Active Substance: SECUKINUMAB
     Dosage: 300 MG, QW
     Route: 058
     Dates: start: 20181221
  14. SCAPHO [Suspect]
     Active Substance: SECUKINUMAB
     Dosage: 300 MG, QMO
     Route: 058
     Dates: start: 20190524
  15. SCAPHO [Suspect]
     Active Substance: SECUKINUMAB
     Dosage: 300 MG, QMO
     Route: 065
     Dates: start: 20210307
  16. SCAPHO [Suspect]
     Active Substance: SECUKINUMAB
     Dosage: 300 MG, QW
     Route: 058
     Dates: start: 20190111
  17. SCAPHO [Suspect]
     Active Substance: SECUKINUMAB
     Dosage: 300 MG, Q2MO
     Route: 058
     Dates: start: 20200127

REACTIONS (11)
  - Ageusia [Unknown]
  - Dyschezia [Unknown]
  - Abdominal pain [Recovered/Resolved]
  - Abdominal distension [Unknown]
  - Product prescribing error [Unknown]
  - Disease recurrence [Unknown]
  - Inappropriate schedule of product administration [Unknown]
  - COVID-19 [Unknown]
  - Gastric disorder [Unknown]
  - Weight increased [Unknown]
  - Macule [Unknown]
